FAERS Safety Report 25891548 (Version 2)
Quarter: 2025Q4

REPORT INFORMATION
  Report Type: Report from Study
  Country: GB (occurrence: GB)
  Receive Date: 20251007
  Receipt Date: 20251016
  Transmission Date: 20260117
  Serious: Yes (Hospitalization)
  Sender: ABBVIE
  Company Number: GB-ABBVIE-6490854

PATIENT
  Age: 63 Year
  Sex: Female

DRUGS (1)
  1. SKYRIZI [Suspect]
     Active Substance: RISANKIZUMAB-RZAA
     Indication: Psoriasis
     Dosage: FORM STRENGTH - 150MG/1ML. DOSE FORM - SOLUTION FOR INJECTION PRE-FILLED PENS. 1 PRE-FILLED DISPO...
     Route: 058
     Dates: start: 20231017

REACTIONS (5)
  - Spinal fracture [Unknown]
  - Skin abrasion [Unknown]
  - Fall [Unknown]
  - Product storage error [Unknown]
  - Psoriasis [Unknown]

NARRATIVE: CASE EVENT DATE: 20250101
